FAERS Safety Report 5460053-9 (Version None)
Quarter: 2007Q3

REPORT INFORMATION
  Report Type: 
  Country: None (occurrence: None)
  Receive Date: 20070919
  Receipt Date: 20070507
  Transmission Date: 20080115
  Serious: Yes (Other)
  Sender: FDA-Public Use
  Company Number: US-ASTRAZENECA-2007UW10889

PATIENT
  Age: 34 Year
  Sex: Male
  Weight: 93.2 kg

DRUGS (7)
  1. SEROQUEL [Suspect]
     Route: 048
     Dates: start: 20031008
  2. ZYPREXA [Suspect]
     Dates: start: 20030420
  3. RISPERDAL [Concomitant]
     Dates: start: 20030420, end: 20030610
  4. GEODON [Concomitant]
  5. STELAZINE [Concomitant]
  6. THORAZINE [Concomitant]
  7. TRILAFON [Concomitant]

REACTIONS (2)
  - DIABETES MELLITUS [None]
  - PANCREATITIS [None]
